FAERS Safety Report 6128368-9 (Version None)
Quarter: 2009Q1

REPORT INFORMATION
  Report Type: 
  Country: None (occurrence: None)
  Receive Date: 20090323
  Receipt Date: 20090316
  Transmission Date: 20090719
  Serious: Yes (Hospitalization)
  Sender: FDA-Public Use
  Company Number: US-GILEAD-2009-0020711

PATIENT
  Sex: Male
  Weight: 86.26 kg

DRUGS (20)
  1. LETAIRIS [Suspect]
     Indication: PULMONARY HYPERTENSION
     Route: 048
     Dates: start: 20090209
  2. VIAGRA [Concomitant]
  3. REMODULIN [Concomitant]
  4. INSPRA [Concomitant]
  5. OXYGEN [Concomitant]
  6. ASPIRIN [Concomitant]
  7. BUMEX [Concomitant]
  8. ZOCOR [Concomitant]
  9. EPLERENONE [Concomitant]
  10. SINGULAIR [Concomitant]
  11. K-DUR [Concomitant]
  12. ALBUTEROL [Concomitant]
  13. ADVAIR DISKUS 100/50 [Concomitant]
  14. TRAMADOL HCL [Concomitant]
  15. MIRAPEX [Concomitant]
  16. LOVAZA [Concomitant]
  17. MULTI-VITAMIN [Concomitant]
  18. PROMETHAZINE [Concomitant]
  19. AMBIEN [Concomitant]
  20. MOTRIN [Concomitant]

REACTIONS (2)
  - BACTERAEMIA [None]
  - RESPIRATORY DISTRESS [None]
